FAERS Safety Report 17774188 (Version 2)
Quarter: 2020Q4

REPORT INFORMATION
  Report Type: Report from Study
  Country: None (occurrence: US)
  Receive Date: 20200513
  Receipt Date: 20201007
  Transmission Date: 20210113
  Serious: Yes (Other)
  Sender: FDA-Public Use
  Company Number: US-ABBVIE-19K-163-2981217-00

PATIENT
  Age: 66 Year
  Sex: Female

DRUGS (2)
  1. HUMIRA [Suspect]
     Active Substance: ADALIMUMAB
     Indication: PSORIASIS
     Dosage: CITRATE FREE
     Route: 058
  2. HUMIRA [Suspect]
     Active Substance: ADALIMUMAB
     Dosage: CITRATE FREE
     Route: 058
     Dates: end: 2020

REACTIONS (12)
  - Drug ineffective [Recovering/Resolving]
  - Hypotension [Unknown]
  - Headache [Not Recovered/Not Resolved]
  - Loss of consciousness [Recovered/Resolved]
  - Fall [Recovering/Resolving]
  - Irritability [Unknown]
  - Loss of consciousness [Recovered/Resolved]
  - Formication [Unknown]
  - Patella fracture [Unknown]
  - Arthralgia [Not Recovered/Not Resolved]
  - Nephrolithiasis [Unknown]
  - Rash papular [Unknown]

NARRATIVE: CASE EVENT DATE: 2018
